FAERS Safety Report 15005593 (Version 10)
Quarter: 2018Q4

REPORT INFORMATION
  Report Type: Report from Study
  Country: US (occurrence: US)
  Receive Date: 20180613
  Receipt Date: 20181112
  Transmission Date: 20190204
  Serious: Yes (Other)
  Sender: FDA-Public Use
  Company Number: US-PFIZER INC-2018237525

PATIENT
  Age: 70 Year
  Sex: Female

DRUGS (5)
  1. IBRANCE [Suspect]
     Active Substance: PALBOCICLIB
     Dosage: 125 MG, CYCLIC (5 DAYS ON AND 2 DAYS OFF)
     Route: 048
     Dates: start: 20180618
  2. IBRANCE [Suspect]
     Active Substance: PALBOCICLIB
     Dosage: 125 MG, CYCLIC (QD X 21 DAYS ON)
     Route: 048
  3. LETROZOLE. [Concomitant]
     Active Substance: LETROZOLE
     Dosage: UNK
  4. IBRANCE [Suspect]
     Active Substance: PALBOCICLIB
     Indication: BREAST CANCER
     Dosage: 125 MG, CYCLIC (DAILY /21 DAYS ON AND 7 DAYS OFF)
     Route: 048
     Dates: start: 20180515, end: 20180605
  5. IBRANCE [Suspect]
     Active Substance: PALBOCICLIB
     Dosage: 125 MG, CYCLIC (5 DAYS ON AND 2 DAYS OFF)
     Route: 048

REACTIONS (31)
  - Chills [Recovering/Resolving]
  - Diarrhoea [Recovering/Resolving]
  - Anaemia [Recovering/Resolving]
  - Balance disorder [Unknown]
  - Cough [Recovering/Resolving]
  - Malaise [Recovering/Resolving]
  - Nausea [Unknown]
  - Urinary hesitation [Unknown]
  - Urinary tract infection [Unknown]
  - Pollakiuria [Unknown]
  - Bone marrow failure [Unknown]
  - Fatigue [Unknown]
  - Dyspnoea [Recovering/Resolving]
  - Pyrexia [Recovering/Resolving]
  - Lymphoedema [Unknown]
  - Product dose omission [Unknown]
  - Dizziness [Unknown]
  - Tumour marker increased [Unknown]
  - Leukopenia [Unknown]
  - Neutropenia [Recovering/Resolving]
  - Condition aggravated [Recovering/Resolving]
  - Renal impairment [Not Recovered/Not Resolved]
  - Skin infection [Unknown]
  - Back pain [Unknown]
  - Contusion [Recovering/Resolving]
  - Depression [Unknown]
  - Heart valve incompetence [Unknown]
  - Decreased appetite [Recovering/Resolving]
  - Weight fluctuation [Unknown]
  - Vulvovaginal mycotic infection [Recovering/Resolving]
  - Peripheral swelling [Unknown]

NARRATIVE: CASE EVENT DATE: 2018
